FAERS Safety Report 5782385-7 (Version None)
Quarter: 2008Q2

REPORT INFORMATION
  Report Type: 
  Country: None (occurrence: None)
  Receive Date: 20080623
  Receipt Date: 20071107
  Transmission Date: 20081010
  Serious: No
  Sender: FDA-Public Use
  Company Number: US-AMGEN-US251571

PATIENT
  Sex: Female

DRUGS (4)
  1. ARANESP [Suspect]
     Indication: MYELODYSPLASTIC SYNDROME
     Route: 065
     Dates: start: 20070301, end: 20070401
  2. CHLOROPHYLL [Concomitant]
     Route: 065
     Dates: start: 20070101
  3. ALTACE [Concomitant]
     Route: 065
  4. VITAMIN D [Concomitant]
     Route: 065

REACTIONS (1)
  - HAEMOGLOBIN DECREASED [None]
